FAERS Safety Report 8518140 (Version 4)
Quarter: 2015Q1

REPORT INFORMATION
  Report Type: Spontaneous
  Country: US (occurrence: US)
  Receive Date: 20120417
  Receipt Date: 20150125
  Transmission Date: 20150721
  Serious: No
  Sender: FDA-Public Use
  Company Number: US-ASTRAZENECA-2011SE33584

PATIENT
  Age: 94 Year
  Sex: Female

DRUGS (2)
  1. NEXIUM [Suspect]
     Active Substance: ESOMEPRAZOLE MAGNESIUM
     Indication: ABDOMINAL DISCOMFORT
     Route: 048
  2. SYMBICORT [Suspect]
     Active Substance: BUDESONIDE\FORMOTEROL FUMARATE DIHYDRATE
     Indication: EMPHYSEMA
     Dosage: 160/4.5, 2 PUFFS BID
     Route: 055

REACTIONS (8)
  - Gastric disorder [Not Recovered/Not Resolved]
  - Throat tightness [Unknown]
  - Off label use [Unknown]
  - Malaise [Unknown]
  - Sinus disorder [Unknown]
  - Choking sensation [Unknown]
  - Dyspnoea [Unknown]
  - Macular degeneration [Not Recovered/Not Resolved]

NARRATIVE: CASE EVENT DATE: 2014
